FAERS Safety Report 18973244 (Version 3)
Quarter: 2021Q1

REPORT INFORMATION
  Report Type: Spontaneous
  Country: IT (occurrence: IT)
  Receive Date: 20210305
  Receipt Date: 20210325
  Transmission Date: 20210420
  Serious: Yes (Hospitalization)
  Sender: FDA-Public Use
  Company Number: IT-TEVA-2021-IT-1886687

PATIENT
  Age: 30 Year
  Sex: Male

DRUGS (1)
  1. FLUCONAZOLO MYLAN 100 MG CAPSULE RIGIDE [Suspect]
     Active Substance: FLUCONAZOLE
     Indication: GENITAL CANDIDIASIS
     Route: 048
     Dates: start: 20210212, end: 20210213

REACTIONS (3)
  - Rash erythematous [Recovering/Resolving]
  - Pruritus [Recovering/Resolving]
  - Drug hypersensitivity [Recovering/Resolving]

NARRATIVE: CASE EVENT DATE: 20210213
